FAERS Safety Report 7020199-0 (Version None)
Quarter: 2010Q3

REPORT INFORMATION
  Report Type: 
  Country: None (occurrence: None)
  Receive Date: 20100929
  Receipt Date: 20100915
  Transmission Date: 20110219
  Serious: Yes (Hospitalization, Other)
  Sender: FDA-Public Use
  Company Number: PHHY2008JP22628

PATIENT
  Age: 69 Year
  Sex: Male

DRUGS (2)
  1. TEGRETOL [Suspect]
     Indication: TRIGEMINAL NEURALGIA
     Dosage: 200 MG PER DAY
     Route: 048
  2. TEGRETOL [Suspect]
     Dosage: 400 MG PER DAY

REACTIONS (11)
  - BODY TEMPERATURE INCREASED [None]
  - C-REACTIVE PROTEIN INCREASED [None]
  - FACIAL PAIN [None]
  - HYPOPHAGIA [None]
  - INSOMNIA [None]
  - PHLEBITIS [None]
  - PLATELET COUNT DECREASED [None]
  - RASH [None]
  - SPEECH DISORDER [None]
  - TEMPORAL ARTERITIS [None]
  - WHITE BLOOD CELL COUNT DECREASED [None]
